FAERS Safety Report 14408523 (Version 1)
Quarter: 2018Q1

REPORT INFORMATION
  Report Type: Other
  Country: FR (occurrence: FR)
  Receive Date: 20180119
  Receipt Date: 20180119
  Transmission Date: 20180509
  Serious: Yes (Other)
  Sender: FDA-Public Use
  Company Number: FR-MACLEODS PHARMACEUTICALS US LTD-MAC2018008532

PATIENT

DRUGS (7)
  1. CANDESARTAN. [Suspect]
     Active Substance: CANDESARTAN
     Indication: MYOCARDIAL INFARCTION
     Dosage: 1 DF, QD, TABLET BREACKABLE
     Route: 048
     Dates: start: 20170322
  2. KARDEGIC [Suspect]
     Active Substance: ASPIRIN DL-LYSINE
     Indication: MYOCARDIAL INFARCTION
     Dosage: 1 DF, QD, POWDER FOR ORAL SOLUTION IN SACHET-DOSE
     Route: 048
     Dates: start: 201606
  3. LIPTRUZET [Suspect]
     Active Substance: ATORVASTATIN CALCIUM\EZETIMIBE
     Indication: MYOCARDIAL INFARCTION
     Dosage: 1 DF, QD, COATED TABLET
     Route: 048
     Dates: start: 20170613
  4. PANTOPRAZOLE [Suspect]
     Active Substance: PANTOPRAZOLE
     Indication: MYOCARDIAL INFARCTION
     Dosage: 20 MG, QD
     Route: 048
     Dates: start: 201606
  5. ATORVASTATIN [Suspect]
     Active Substance: ATORVASTATIN
     Indication: MYOCARDIAL INFARCTION
     Dosage: 80 MG, QD
     Route: 048
     Dates: start: 20160615, end: 20170613
  6. BRILIQUE 90 MG [Suspect]
     Active Substance: TICAGRELOR
     Indication: MYOCARDIAL INFARCTION
     Dosage: 2 DF, QD
     Route: 048
     Dates: start: 201606
  7. BISOCE 2,5 MG [Suspect]
     Active Substance: BISOPROLOL FUMARATE
     Indication: MYOCARDIAL INFARCTION
     Dosage: 1 DF, QD, DIVISIBLE COATED TABLET
     Route: 048
     Dates: start: 201606

REACTIONS (2)
  - Pain in extremity [Not Recovered/Not Resolved]
  - Vertigo [Not Recovered/Not Resolved]

NARRATIVE: CASE EVENT DATE: 2016
